FAERS Safety Report 9998873 (Version 2)
Quarter: 2014Q1

REPORT INFORMATION
  Report Type: Spontaneous
  Country: US (occurrence: US)
  Receive Date: 20140312
  Receipt Date: 20140312
  Transmission Date: 20141002
  Serious: Yes (Other)
  Sender: FDA-Public Use
  Company Number: US-BEH-2013038958

PATIENT
  Age: 56 Year
  Sex: Female
  Weight: 47 kg

DRUGS (29)
  1. PRIVIGEN [Suspect]
     Indication: HYPOGLOBULINAEMIA
     Dosage: 3-4 HOURS
     Route: 042
     Dates: start: 20131111, end: 20131111
  2. PRIVIGEN [Suspect]
     Dosage: 3-4 HOURS
     Route: 042
     Dates: start: 20131111, end: 20131111
  3. PRIVIGEN [Suspect]
     Dosage: 3-4 HOURS
     Route: 042
     Dates: start: 20131111, end: 20131111
  4. PRIVIGEN [Suspect]
     Dosage: 5 GM VIALS
     Route: 042
  5. PRIVIGEN [Suspect]
     Dosage: 10 GM VIALS
     Route: 042
  6. PRIVIGEN [Suspect]
     Dosage: 20 GM VIALS
     Route: 042
  7. ACETAMINOPHEN [Concomitant]
  8. DIPHENHYDRAMINE [Concomitant]
  9. HEPARIN [Concomitant]
  10. SODIUM CHLORIDE [Concomitant]
  11. EPI-PEN [Concomitant]
  12. ITRACONAZOLE [Concomitant]
  13. TOBRAMYCIN [Concomitant]
  14. PREDNISONE [Concomitant]
  15. METHOCARBAMOL [Concomitant]
  16. BUPROPION [Concomitant]
  17. BENICAR [Concomitant]
  18. LIPITOR [Concomitant]
  19. VERAMYST [Concomitant]
     Route: 045
  20. ALBUTEROL [Concomitant]
     Dosage: 2 MG/5 ML
  21. VENTOLIN [Concomitant]
     Route: 055
  22. SYMBICORT [Concomitant]
     Dosage: 160-4.5 MCG
     Route: 055
  23. PULMICORT [Concomitant]
     Route: 055
  24. HYDROCHLOROTHIAZIDE [Concomitant]
  25. BENZONATE [Concomitant]
  26. PREDNISOLONE [Concomitant]
  27. ALVESCO [Concomitant]
  28. FORTEO [Concomitant]
  29. CELEBREX [Concomitant]

REACTIONS (2)
  - Pneumonia [Unknown]
  - Blood pressure increased [Unknown]
